FAERS Safety Report 11348672 (Version 4)
Quarter: 2016Q1

REPORT INFORMATION
  Report Type: Spontaneous
  Country: US (occurrence: US)
  Receive Date: 20150806
  Receipt Date: 20160114
  Transmission Date: 20160525
  Serious: Yes (Disabling, Other)
  Sender: FDA-Public Use
  Company Number: US-REGENERON PHARMACEUTICALS, INC.-2015-11896

PATIENT

DRUGS (2)
  1. EYLEA [Suspect]
     Active Substance: AFLIBERCEPT
     Indication: RETINAL NEOVASCULARISATION
     Dosage: 2 MG MILLIGRAM(S), MONTHLY
     Route: 031
     Dates: start: 20150414, end: 20150414
  2. EYLEA [Suspect]
     Active Substance: AFLIBERCEPT
     Dosage: 2 MG MILLIGRAM(S), MONTHLY
     Route: 031
     Dates: start: 20150723, end: 20150723

REACTIONS (3)
  - Blindness transient [Recovered/Resolved]
  - Endophthalmitis [Recovered/Resolved]
  - Intraocular pressure decreased [Recovered/Resolved]

NARRATIVE: CASE EVENT DATE: 201507
